FAERS Safety Report 10573202 (Version 2)
Quarter: 2014Q4

REPORT INFORMATION
  Report Type: Spontaneous
  Country: US (occurrence: US)
  Receive Date: 20141110
  Receipt Date: 20141120
  Transmission Date: 20150529
  Serious: Yes (Death, Life-Threatening, Hospitalization, Other)
  Sender: FDA-Public Use
  Company Number: US-MERCK-1411USA003250

PATIENT
  Sex: Female
  Weight: 68.27 kg

DRUGS (1)
  1. JANUVIA [Suspect]
     Active Substance: SITAGLIPTIN PHOSPHATE
     Indication: TYPE 2 DIABETES MELLITUS
     Dosage: 50MG, 1-2 TABLETS, QD
     Route: 048
     Dates: start: 20120118, end: 20140107

REACTIONS (20)
  - Gastrointestinal haemorrhage [Unknown]
  - Eye operation [Unknown]
  - Polyarthritis [Unknown]
  - Hip arthroplasty [Unknown]
  - Chronic obstructive pulmonary disease [Unknown]
  - Fall [Unknown]
  - Haemorrhagic anaemia [Unknown]
  - Syncope [Unknown]
  - Encephalopathy [Unknown]
  - Respiratory distress [Unknown]
  - Urinary tract infection [Unknown]
  - Appendicectomy [Unknown]
  - Adenocarcinoma pancreas [Fatal]
  - Fibula fracture [Unknown]
  - Hypovolaemic shock [Unknown]
  - Coronary artery disease [Unknown]
  - Hysterectomy [Unknown]
  - Bile duct stent insertion [Unknown]
  - Cholecystectomy [Unknown]
  - Carpal tunnel decompression [Unknown]

NARRATIVE: CASE EVENT DATE: 20131022
